FAERS Safety Report 5216218-4 (Version None)
Quarter: 2007Q1

REPORT INFORMATION
  Report Type: 
  Country: None (occurrence: None)
  Receive Date: 20070123
  Receipt Date: 20070115
  Transmission Date: 20070707
  Serious: Yes (Hospitalization)
  Sender: FDA-Public Use
  Company Number: FR-SHR-FR-2006-041417

PATIENT
  Age: 55 Year
  Sex: Female
  Weight: 110 kg

DRUGS (7)
  1. SOTALOL HYDROCHLORIDE [Suspect]
     Dosage: 160 MG, 1X/DAY
     Route: 048
  2. ACECLOFENAC [Suspect]
     Indication: RHEUMATOID ARTHRITIS
     Dosage: 100 MG, 1X/DAY
     Route: 048
  3. COTAREG ^RHONE-POULENC RORER^ [Suspect]
     Route: 048
  4. PROVAMES [Suspect]
     Dosage: 1 DF, 1X/DAY
     Route: 048
     Dates: start: 19980101, end: 20051026
  5. NOVATREX ^LEDERLE^ [Suspect]
     Indication: RHEUMATOID ARTHRITIS
     Dosage: 5 MG, 1X/WEEK
     Route: 048
  6. PROGESTERONE [Suspect]
     Dosage: 100 MG, 1X/DAY
     Route: 048
     Dates: start: 19980101, end: 20051026
  7. TRAMADOL HCL [Suspect]
     Route: 048

REACTIONS (1)
  - PHLEBITIS [None]
